FAERS Safety Report 6848186-3 (Version None)
Quarter: 2010Q3

REPORT INFORMATION
  Report Type: 
  Country: None (occurrence: None)
  Receive Date: 20100716
  Receipt Date: 20100708
  Transmission Date: 20110219
  Serious: Yes (Other)
  Sender: FDA-Public Use
  Company Number: B0657277A

PATIENT
  Age: 41 Year
  Sex: Male

DRUGS (4)
  1. WELLBUTRIN [Suspect]
     Dosage: 150MG PER DAY
     Route: 065
     Dates: start: 20100215, end: 20100406
  2. OXCARBAZEPINE [Concomitant]
     Dosage: 1800MG PER DAY
     Route: 065
  3. ZYPREXA [Concomitant]
     Dosage: 5MG PER DAY
     Route: 065
  4. RISPERDAL [Concomitant]
     Dosage: 37.5MG EVERY TWO WEEKS
     Route: 030

REACTIONS (3)
  - HYPOMANIA [None]
  - MEDICATION RESIDUE [None]
  - PRODUCT QUALITY ISSUE [None]
